FAERS Safety Report 12805096 (Version 1)
Quarter: 2016Q4

REPORT INFORMATION
  Report Type: Spontaneous
  Country: FR (occurrence: FR)
  Receive Date: 20161004
  Receipt Date: 20161004
  Transmission Date: 20170207
  Serious: Yes (Hospitalization)
  Sender: FDA-Public Use
  Company Number: FR-CIPLA LTD.-2016FR18891

PATIENT

DRUGS (2)
  1. CLONAZEPAM. [Suspect]
     Active Substance: CLONAZEPAM
     Indication: EPILEPSY
     Dosage: 1 MG, UNK
     Route: 065
  2. OLANZAPINE. [Suspect]
     Active Substance: OLANZAPINE
     Indication: SCHIZOPHRENIA
     Dosage: 300 MG, MONTHLY INJECTION
     Route: 065

REACTIONS (6)
  - Retrograde amnesia [Unknown]
  - Epilepsy [Unknown]
  - Coma [Recovered/Resolved]
  - Respiratory distress [Unknown]
  - Psychomotor retardation [Unknown]
  - Post-injection delirium sedation syndrome [Unknown]
